FAERS Safety Report 9916096 (Version 1)
Quarter: 2014Q1

REPORT INFORMATION
  Report Type: Report from Study
  Country: AU (occurrence: AU)
  Receive Date: 20140221
  Receipt Date: 20140221
  Transmission Date: 20141002
  Serious: Yes (Death)
  Sender: FDA-Public Use
  Company Number: AU-BRISTOL-MYERS SQUIBB COMPANY-20213989

PATIENT
  Age: 73 Year
  Sex: Female

DRUGS (5)
  1. ORENCIA [Suspect]
     Indication: RHEUMATOID ARTHRITIS
     Route: 042
     Dates: start: 20080825, end: 20111210
  2. METHOTREXATE [Concomitant]
  3. KARVEA [Concomitant]
  4. PREDNISONE [Concomitant]
  5. KAPANOL [Concomitant]

REACTIONS (1)
  - Death [Fatal]
